FAERS Safety Report 6758930-1 (Version None)
Quarter: 2010Q2

REPORT INFORMATION
  Report Type: 
  Country: None (occurrence: None)
  Receive Date: 20100607
  Receipt Date: 20100507
  Transmission Date: 20101027
  Serious: No
  Sender: FDA-Public Use
  Company Number: US-BAYER-201015345BCC

PATIENT
  Age: 72 Year
  Sex: Female
  Weight: 71 kg

DRUGS (3)
  1. ALEVE (CAPLET) [Suspect]
     Indication: ARTHRALGIA
     Dosage: BOTTLE COUNT 24S
     Route: 048
     Dates: start: 20100301, end: 20100401
  2. THYROXISE [Concomitant]
     Route: 065
  3. AMLODIPINE AND BENAZEPRIL [Concomitant]

REACTIONS (1)
  - JOINT SWELLING [None]
